FAERS Safety Report 6252772-1 (Version None)
Quarter: 2009Q2

REPORT INFORMATION
  Report Type: 
  Country: None (occurrence: None)
  Receive Date: 20090629
  Receipt Date: 20090615
  Transmission Date: 20091009
  Serious: Yes (Hospitalization, Other)
  Sender: FDA-Public Use
  Company Number: 2009AL004064

PATIENT
  Age: 37 Year
  Sex: Male

DRUGS (13)
  1. HYDROCHLOROTHIAZIDE [Suspect]
  2. LISINOPRIL [Concomitant]
  3. WELLBUTRIN XL [Concomitant]
  4. COPAXONE [Concomitant]
  5. ZOLPIDEM [Concomitant]
  6. ASPIRIN [Concomitant]
  7. FISH OIL [Concomitant]
  8. ATORVASTATIN CALCIUM [Concomitant]
  9. TOCOPHEROL CONCENTRATE CAP [Concomitant]
  10. EZETIMIBE [Concomitant]
  11. ELORAZEPAM [Concomitant]
  12. DULOXETINE HYDROCHLORIDE [Concomitant]
  13. OXYCODONE [Concomitant]

REACTIONS (4)
  - DRUG INTERACTION [None]
  - HYPOTENSION [None]
  - RENAL FAILURE ACUTE [None]
  - VASODILATATION [None]
